FAERS Safety Report 17522077 (Version 1)
Quarter: 2020Q1

REPORT INFORMATION
  Report Type: Spontaneous
  Country: PT (occurrence: FR)
  Receive Date: 20200310
  Receipt Date: 20200310
  Transmission Date: 20200409
  Serious: Yes (Other)
  Sender: FDA-Public Use
  Company Number: PT-SUNOVION-2020SUN000818

PATIENT

DRUGS (5)
  1. VIMPAT [Concomitant]
     Active Substance: LACOSAMIDE
     Dosage: 200 MILLIGRAM, UNKNOWN
  2. ZEBINIX [Suspect]
     Active Substance: ESLICARBAZEPINE ACETATE
     Indication: LIMBIC ENCEPHALITIS
     Dosage: UNKNOWN
     Route: 048
     Dates: start: 201906, end: 20190705
  3. KEPPRA [Concomitant]
     Active Substance: LEVETIRACETAM
     Dosage: 750 MILLIGRAM, UNKNOWN
  4. LANSOPRAZOLE. [Concomitant]
     Active Substance: LANSOPRAZOLE
     Dosage: UNKNOWN
  5. PREDNISONE. [Concomitant]
     Active Substance: PREDNISONE
     Dosage: UNKNOWN

REACTIONS (2)
  - Off label use [Unknown]
  - Photosensitivity reaction [Recovered/Resolved with Sequelae]

NARRATIVE: CASE EVENT DATE: 201906
